FAERS Safety Report 5924588-4 (Version None)
Quarter: 2008Q3

REPORT INFORMATION
  Report Type: 
  Country: None (occurrence: None)
  Receive Date: 20080909
  Receipt Date: 20080220
  Transmission Date: 20090109
  Serious: Yes (Death)
  Sender: FDA-Public Use
  Company Number: 163-20785-08021278

PATIENT
  Age: 88 Year
  Sex: Female
  Weight: 66.2252 kg

DRUGS (5)
  1. THALOMID [Suspect]
     Indication: MULTIPLE MYELOMA
     Dosage: 200 MG, QD, ORAL
     Route: 048
     Dates: start: 20080201, end: 20080201
  2. COUMADIN [Concomitant]
  3. COZAAR [Concomitant]
  4. COREG [Concomitant]
  5. LEVOTHYROXINE SODIUM [Concomitant]

REACTIONS (1)
  - DISEASE PROGRESSION [None]
